FAERS Safety Report 4313256-0 (Version None)
Quarter: 2004Q1

REPORT INFORMATION
  Report Type: 
  Country: None (occurrence: None)
  Receive Date: 20040304
  Receipt Date: 20040223
  Transmission Date: 20041129
  Serious: Yes (Hospitalization, Disabling)
  Sender: FDA-Public Use
  Company Number: DPC-2004-00026

PATIENT
  Age: 51 Year
  Sex: Male

DRUGS (1)
  1. FLOXIN OTIC [Suspect]
     Indication: ENDOPHTHALMITIS
     Dosage: OPHTHALMIC
     Route: 047

REACTIONS (3)
  - APPLICATION SITE PAIN [None]
  - EYEBALL AVULSION [None]
  - MEDICATION ERROR [None]
